FAERS Safety Report 8153457-7 (Version None)
Quarter: 2012Q1

REPORT INFORMATION
  Report Type: 
  Country: None (occurrence: None)
  Receive Date: 20120221
  Receipt Date: 20120213
  Transmission Date: 20120608
  Serious: Yes (Other)
  Sender: FDA-Public Use
  Company Number: JP-ROCHE-1036984

PATIENT
  Age: 42 Year
  Sex: Female

DRUGS (2)
  1. MIRCERA [Suspect]
     Indication: NEPHROGENIC ANAEMIA
     Route: 042
     Dates: start: 20111024, end: 20111024
  2. MIRCERA [Suspect]
     Route: 042
     Dates: start: 20111101

REACTIONS (1)
  - HAEMOGLOBIN DECREASED [None]
